FAERS Safety Report 18754742 (Version 2)
Quarter: 2021Q1

REPORT INFORMATION
  Report Type: Spontaneous
  Country: GB (occurrence: GB)
  Receive Date: 20210119
  Receipt Date: 20210319
  Transmission Date: 20210419
  Serious: Yes (Hospitalization, Other)
  Sender: FDA-Public Use
  Company Number: GB-VELOXIS PHARMACEUTICALS-2020VELGB-001126

PATIENT
  Age: 61 Year
  Sex: Male

DRUGS (6)
  1. VANCOMYCIN [Concomitant]
     Active Substance: VANCOMYCIN
     Indication: EVIDENCE BASED TREATMENT
     Dosage: UNK
     Route: 065
  2. TEMOCILLIN [Interacting]
     Active Substance: TEMOCILLIN
     Indication: UROSEPSIS
  3. ENVARSUS XR [Suspect]
     Active Substance: TACROLIMUS
     Indication: IMMUNOSUPPRESSANT DRUG THERAPY
     Dosage: UNK
     Route: 065
  4. TEMOCILLIN [Interacting]
     Active Substance: TEMOCILLIN
     Indication: EVIDENCE BASED TREATMENT
     Dosage: UNK
     Route: 065
  5. VANCOMYCIN [Concomitant]
     Active Substance: VANCOMYCIN
     Indication: UROSEPSIS
  6. WARFARIN [Interacting]
     Active Substance: WARFARIN
     Indication: ANTICOAGULANT THERAPY
     Dosage: UNK
     Route: 065

REACTIONS (7)
  - Acute kidney injury [Recovered/Resolved]
  - Transplant rejection [Unknown]
  - Anticoagulant-related nephropathy [Recovered/Resolved]
  - Therapeutic product effect increased [Recovered/Resolved]
  - Urosepsis [Unknown]
  - Drug interaction [Recovered/Resolved]
  - Haematuria [Unknown]
